FAERS Safety Report 16921408 (Version 1)
Quarter: 2019Q4

REPORT INFORMATION
  Report Type: Spontaneous
  Country: US (occurrence: US)
  Receive Date: 20191015
  Receipt Date: 20191015
  Transmission Date: 20200122
  Serious: Yes (Other)
  Sender: FDA-Public Use
  Company Number: US-TEVA-2019-US-1120315

PATIENT
  Sex: Female

DRUGS (1)
  1. LIDOCAINE TOPICAL 5% PATCH TEVA [Suspect]
     Active Substance: LIDOCAINE
     Indication: BACK PAIN
     Route: 061

REACTIONS (4)
  - Facial paralysis [Unknown]
  - Thrombosis [Unknown]
  - Aspiration [Unknown]
  - Pulmonary embolism [Unknown]

NARRATIVE: CASE EVENT DATE: 20190530
